FAERS Safety Report 21854880 (Version 4)
Quarter: 2023Q2

REPORT INFORMATION
  Report Type: Report from Study
  Country: MY (occurrence: MY)
  Receive Date: 20230112
  Receipt Date: 20230412
  Transmission Date: 20230721
  Serious: Yes (Death, Life-Threatening, Hospitalization, Disabling, Other)
  Sender: FDA-Public Use
  Company Number: MY-JNJFOC-20221224502

PATIENT
  Age: 72 Year
  Sex: Male
  Weight: 60 kg

DRUGS (17)
  1. AMIVANTAMAB [Suspect]
     Active Substance: AMIVANTAMAB
     Indication: Colorectal cancer
     Route: 042
     Dates: start: 20221102, end: 20221130
  2. ADEMETIONINE [Concomitant]
     Active Substance: ADEMETIONINE
     Indication: Aspartate aminotransferase increased
     Route: 048
     Dates: start: 20221108, end: 20230115
  3. DIETARY SUPPLEMENT\HERBALS\MILK THISTLE [Concomitant]
     Active Substance: MILK THISTLE
     Indication: Aspartate aminotransferase increased
     Route: 048
     Dates: start: 20221108, end: 20230115
  4. ACETAMINOPHEN [Concomitant]
     Active Substance: ACETAMINOPHEN
     Indication: Pain in extremity
     Route: 048
     Dates: start: 20221101, end: 20221107
  5. ACETAMINOPHEN [Concomitant]
     Active Substance: ACETAMINOPHEN
     Route: 048
     Dates: start: 20221115, end: 20221128
  6. DOXYCYCLINE [Concomitant]
     Active Substance: DOXYCYCLINE
     Indication: Prophylaxis
     Route: 048
     Dates: start: 20221101, end: 20221226
  7. ULTRACET [Concomitant]
     Active Substance: ACETAMINOPHEN\TRAMADOL HYDROCHLORIDE
     Indication: Pain in extremity
     Dosage: TRAMADOL 37.5 MG AND PARACETAMOL 325 MG
     Route: 048
     Dates: start: 20221108, end: 20221205
  8. URSODIOL [Concomitant]
     Active Substance: URSODIOL
     Indication: Blood bilirubin increased
     Route: 048
     Dates: start: 20221115, end: 20230115
  9. URSODIOL [Concomitant]
     Active Substance: URSODIOL
     Route: 048
     Dates: start: 20221115
  10. ALBUMIN HUMAN [Concomitant]
     Active Substance: ALBUMIN HUMAN
     Indication: Hypoalbuminaemia
     Route: 042
     Dates: start: 20221130, end: 20221130
  11. ALBUMIN HUMAN [Concomitant]
     Active Substance: ALBUMIN HUMAN
     Route: 042
     Dates: start: 20230114, end: 20230114
  12. ALBUMIN HUMAN [Concomitant]
     Active Substance: ALBUMIN HUMAN
     Route: 042
     Dates: start: 20221210, end: 20221211
  13. ALBUMIN HUMAN [Concomitant]
     Active Substance: ALBUMIN HUMAN
     Route: 042
     Dates: start: 20221211, end: 20221217
  14. ALBUMIN HUMAN [Concomitant]
     Active Substance: ALBUMIN HUMAN
     Route: 042
     Dates: start: 20221223, end: 20221226
  15. ELTROMBOPAG [Concomitant]
     Active Substance: ELTROMBOPAG
     Indication: Platelet count decreased
     Route: 048
     Dates: start: 20221213, end: 20230107
  16. ELTROMBOPAG [Concomitant]
     Active Substance: ELTROMBOPAG
     Indication: Platelet count decreased
  17. DEXAMETHASONE [Concomitant]
     Active Substance: DEXAMETHASONE
     Indication: Prophylaxis
     Route: 048
     Dates: start: 20221108, end: 20221205

REACTIONS (3)
  - Hyponatraemia [Recovering/Resolving]
  - Skin ulcer [Not Recovered/Not Resolved]
  - Pneumonia [Fatal]

NARRATIVE: CASE EVENT DATE: 20221202
